FAERS Safety Report 19416369 (Version 1)
Quarter: 2021Q2

REPORT INFORMATION
  Report Type: Spontaneous
  Country: DE (occurrence: DE)
  Receive Date: 20210614
  Receipt Date: 20210614
  Transmission Date: 20210717
  Serious: Yes (Hospitalization)
  Sender: FDA-Public Use
  Company Number: DE-PFIZER INC-2021633265

PATIENT
  Age: 71 Year
  Sex: Male

DRUGS (5)
  1. BEVACIZUMAB. [Suspect]
     Active Substance: BEVACIZUMAB
  2. IRINOTECAN [Suspect]
     Active Substance: IRINOTECAN
  3. 5?FU [FLUOROURACIL] [Suspect]
     Active Substance: FLUOROURACIL
  4. METAMIZOLE [Concomitant]
     Active Substance: METAMIZOLE
     Dosage: UNK, AS NEEDED
  5. PREGABALIN. [Concomitant]
     Active Substance: PREGABALIN
     Dosage: 5 MG, 2X/DAY

REACTIONS (1)
  - Dyspnoea [Not Recovered/Not Resolved]

NARRATIVE: CASE EVENT DATE: 20210219
